FAERS Safety Report 5837560-X (Version None)
Quarter: 2008Q3

REPORT INFORMATION
  Report Type: 
  Country: None (occurrence: None)
  Receive Date: 20080807
  Receipt Date: 20080729
  Transmission Date: 20090109
  Serious: Yes (Life-Threatening, Hospitalization)
  Sender: FDA-Public Use
  Company Number: CA-AMGEN-US295884

PATIENT
  Sex: Male

DRUGS (7)
  1. PANITUMUMAB [Suspect]
     Indication: SQUAMOUS CELL CARCINOMA
     Route: 042
     Dates: start: 20080508
  2. CISPLATIN [Concomitant]
     Route: 042
     Dates: start: 20080508
  3. FLUOROURACIL [Concomitant]
     Route: 042
     Dates: start: 20080508
  4. ASPIRIN [Concomitant]
  5. AMLODIPINE [Concomitant]
  6. EPROSARTAN [Concomitant]
  7. ATORVASTATIN [Concomitant]

REACTIONS (20)
  - ANAEMIA [None]
  - AORTIC ANEURYSM [None]
  - BLOOD ALBUMIN DECREASED [None]
  - BLOOD MAGNESIUM DECREASED [None]
  - BLOOD POTASSIUM DECREASED [None]
  - BLOOD SODIUM DECREASED [None]
  - BLOOD UREA DECREASED [None]
  - CLOSTRIDIUM DIFFICILE COLITIS [None]
  - CULTURE STOOL POSITIVE [None]
  - DEEP VEIN THROMBOSIS [None]
  - DEHYDRATION [None]
  - DUODENAL ULCER [None]
  - GASTROINTESTINAL HAEMORRHAGE [None]
  - INTESTINAL POLYP [None]
  - LIVER DISORDER [None]
  - LYMPHADENOPATHY [None]
  - NEUTROPENIA [None]
  - PEPTIC ULCER [None]
  - RENAL DISORDER [None]
  - X-RAY ABNORMAL [None]
